FAERS Safety Report 6891755-5 (Version None)
Quarter: 2010Q3

REPORT INFORMATION
  Report Type: 
  Country: None (occurrence: None)
  Receive Date: 20100731
  Receipt Date: 20071018
  Transmission Date: 20110219
  Serious: No
  Sender: FDA-Public Use
  Company Number: US-PFIZER INC-2007079696

PATIENT
  Sex: Female

DRUGS (2)
  1. NEURONTIN [Suspect]
     Indication: TRIGEMINAL NEURALGIA
     Dates: end: 20070821
  2. LYRICA [Suspect]
     Indication: TRIGEMINAL NEURALGIA
     Dates: start: 20070821

REACTIONS (2)
  - MALAISE [None]
  - PAIN [None]
